FAERS Safety Report 18053795 (Version 2)
Quarter: 2020Q3

REPORT INFORMATION
  Report Type: Spontaneous
  Country: AU (occurrence: AU)
  Receive Date: 20200722
  Receipt Date: 20200805
  Transmission Date: 20201103
  Serious: Yes (Hospitalization, Other)
  Sender: FDA-Public Use
  Company Number: AU-ACCORD-191348

PATIENT
  Sex: Female

DRUGS (4)
  1. ROSUVASTATIN. [Suspect]
     Active Substance: ROSUVASTATIN
     Indication: PRODUCT USED FOR UNKNOWN INDICATION
     Dosage: STRENGTH: 40 MG; IN THE MORNING
     Dates: start: 20190919
  2. METOPROLOL APO [Suspect]
     Active Substance: METOPROLOL
     Indication: PRODUCT USED FOR UNKNOWN INDICATION
     Dosage: STRENGTH: 50 MG; IN THE MORNING
     Dates: start: 20190919
  3. PLAVIX [Suspect]
     Active Substance: CLOPIDOGREL BISULFATE
     Indication: PRODUCT USED FOR UNKNOWN INDICATION
     Dates: start: 20190919
  4. ELIQUIS [Suspect]
     Active Substance: APIXABAN
     Indication: PRODUCT USED FOR UNKNOWN INDICATION
     Dosage: IN THE MORNING
     Dates: start: 20190919

REACTIONS (4)
  - Urticaria [Recovering/Resolving]
  - Myocardial infarction [Recovering/Resolving]
  - Treatment noncompliance [Unknown]
  - Allergy to chemicals [Unknown]

NARRATIVE: CASE EVENT DATE: 20190919
